FAERS Safety Report 5371201-3 (Version None)
Quarter: 2007Q2

REPORT INFORMATION
  Report Type: 
  Country: None (occurrence: None)
  Receive Date: 20070615
  Receipt Date: 20061201
  Transmission Date: 20071010
  Serious: Yes (Other)
  Sender: FDA-Public Use
  Company Number: 200613801US

PATIENT
  Sex: Female

DRUGS (4)
  1. LANTUS [Suspect]
     Indication: DIABETES MELLITUS INSULIN-DEPENDENT
     Dosage: 34 U QAM
     Dates: start: 20030101
  2. HUMALOG [Concomitant]
  3. ESCITALOPRAM OXALATE (LEXAPRO) [Concomitant]
  4. LEVOTHYROXINE SODIUM (LEVOTHROID) [Concomitant]

REACTIONS (2)
  - BLOOD GLUCOSE INCREASED [None]
  - HYPERGLYCAEMIA [None]
